FAERS Safety Report 6639657-3 (Version None)
Quarter: 2010Q1

REPORT INFORMATION
  Report Type: 
  Country: None (occurrence: None)
  Receive Date: 20100315
  Receipt Date: 20100225
  Transmission Date: 20100710
  Serious: Yes (Hospitalization)
  Sender: FDA-Public Use
  Company Number: 008319

PATIENT
  Age: 46 Year
  Sex: Female

DRUGS (7)
  1. OMEPRAZOLE [Suspect]
  2. PAROXETINE HCL [Suspect]
     Indication: DEPRESSION
     Dosage: 40 MG ORAL
     Route: 048
     Dates: start: 20080101, end: 20091123
  3. RISPERIDONE [Suspect]
     Indication: SCHIZOPHRENIA
     Dosage: 9 MG ORAL
     Route: 048
     Dates: start: 20080101, end: 20091123
  4. VALIUM [Suspect]
     Indication: ANXIETY
     Dosage: 9 MG ORAL
     Route: 048
     Dates: start: 20080101, end: 20091123
  5. NOCTAMID (NOCTAMID) (NOT SPECIFIED) [Suspect]
     Indication: ANXIETY
     Dosage: ORAL
     Route: 048
     Dates: start: 20080101, end: 20091123
  6. IBUPROFEN [Suspect]
     Indication: PYREXIA
     Dosage: ORAL
     Route: 048
     Dates: start: 20091108, end: 20091123
  7. ACETAMINOPHEN [Suspect]
     Indication: RESPIRATORY TRACT INFECTION
     Dosage: ORAL
     Route: 048
     Dates: start: 20091123, end: 20091204

REACTIONS (4)
  - DEPRESSED LEVEL OF CONSCIOUSNESS [None]
  - INAPPROPRIATE ANTIDIURETIC HORMONE SECRETION [None]
  - RENAL FAILURE ACUTE [None]
  - THROMBOCYTOPENIA [None]
